FAERS Safety Report 9055034 (Version 1)
Quarter: 2013Q1

REPORT INFORMATION
  Report Type: Spontaneous
  Country: DE (occurrence: DE)
  Receive Date: 20130206
  Receipt Date: 20130206
  Transmission Date: 20140127
  Serious: Yes (Hospitalization, Other)
  Sender: FDA-Public Use
  Company Number: DE-AMGEN-DEUCT2011068141

PATIENT
  Age: 67 Year
  Sex: Female

DRUGS (10)
  1. ENBREL [Suspect]
     Indication: RHEUMATOID ARTHRITIS
     Dosage: 25 MG, 2 TIMES/WK
     Route: 058
     Dates: start: 20101206
  2. ASTHMA-SPRAY [Concomitant]
     Dosage: UNK
  3. L-THYROXIN [Concomitant]
     Dosage: 112 UNK, UNK
  4. METFORMIN [Concomitant]
     Dosage: 500 MG, UNK
  5. ATOSIL /00033002/ [Concomitant]
     Dosage: UNK
  6. IBUPROFEN [Concomitant]
     Dosage: 300 MG, UNK
  7. CANDESARTAN [Concomitant]
     Dosage: 0.5 DF, 1X/DAY
  8. ASPIRIN PROTECT [Concomitant]
     Dosage: UNK
  9. DEKRISTOL [Concomitant]
     Dosage: UNK
  10. VITAMIN D /00107901/ [Concomitant]
     Dosage: 20 UNIT, UNK

REACTIONS (5)
  - Pyrexia [Unknown]
  - Glaucoma [Unknown]
  - Cataract [Unknown]
  - Herpes virus infection [Unknown]
  - Nasopharyngitis [Unknown]
